FAERS Safety Report 7470127-9 (Version None)
Quarter: 2011Q2

REPORT INFORMATION
  Report Type: 
  Country: None (occurrence: None)
  Receive Date: 20110510
  Receipt Date: 20110503
  Transmission Date: 20111010
  Serious: Yes (Other)
  Sender: FDA-Public Use
  Company Number: A0921110A

PATIENT
  Age: 42 Year
  Sex: Female

DRUGS (7)
  1. NAPROXEN (ALEVE) [Concomitant]
  2. INTERFERON [Suspect]
     Indication: MULTIPLE SCLEROSIS
     Dosage: 44MCG ALTERNATE DAYS
     Route: 042
     Dates: start: 20050101, end: 20110322
  3. ALBUTEROL INHALER [Concomitant]
  4. ADVAIR DISKUS 100/50 [Suspect]
     Indication: ASTHMA
     Route: 055
  5. CELLCEPT [Concomitant]
  6. CALTRATE + D [Concomitant]
  7. VITAMIN D [Concomitant]

REACTIONS (4)
  - INTERSTITIAL LUNG DISEASE [None]
  - EOSINOPHILIA [None]
  - PNEUMONITIS [None]
  - PNEUMOTHORAX [None]
